FAERS Safety Report 9729560 (Version 1)
Quarter: 2013Q4

REPORT INFORMATION
  Report Type: Spontaneous
  Country: US (occurrence: US)
  Receive Date: 20131204
  Receipt Date: 20131204
  Transmission Date: 20140711
  Serious: No
  Sender: FDA-Public Use
  Company Number: US-ENDO PHARMACEUTICALS INC.-OXAT20120003

PATIENT
  Sex: Female

DRUGS (3)
  1. OXYCODONE/ACETAMINOPHEN [Suspect]
     Indication: PAIN IN EXTREMITY
     Dosage: UNKNOWN
     Route: 048
     Dates: start: 2011, end: 2011
  2. OXYCODONE/ACETAMINOPHEN [Suspect]
     Indication: FIBROMYALGIA
     Dosage: UNKNOWN
     Route: 048
     Dates: start: 2011, end: 2011
  3. MORPHINE [Concomitant]

REACTIONS (1)
  - Drug ineffective [Recovered/Resolved]
